FAERS Safety Report 12201266 (Version 1)
Quarter: 2016Q1

REPORT INFORMATION
  Report Type: Spontaneous
  Country: US (occurrence: US)
  Receive Date: 20160322
  Receipt Date: 20160322
  Transmission Date: 20160526
  Serious: No
  Sender: FDA-Public Use
  Company Number: US-SA-2015SA041958

PATIENT
  Age: 80 Year
  Sex: Female

DRUGS (3)
  1. NASACORT ALLERGY 24HR [Suspect]
     Active Substance: TRIAMCINOLONE ACETONIDE
     Indication: MULTIPLE ALLERGIES
     Dosage: FREQUENCY: 2 SPRY/ NOSTRILQD PRN
     Route: 045
     Dates: start: 201408
  2. SINGULAIR [Interacting]
     Active Substance: MONTELUKAST SODIUM
     Route: 065
  3. NASACORT ALLERGY 24HR [Interacting]
     Active Substance: TRIAMCINOLONE ACETONIDE
     Indication: RHINORRHOEA
     Dosage: FREQUENCY: 2 SPRY/ NOSTRILQD PRN
     Route: 045
     Dates: start: 201408

REACTIONS (3)
  - Drug interaction [Unknown]
  - Rash [Unknown]
  - Therapeutic response decreased [Unknown]
